FAERS Safety Report 25054842 (Version 4)
Quarter: 2025Q3

REPORT INFORMATION
  Report Type: Spontaneous
  Country: US (occurrence: US)
  Receive Date: 20250308
  Receipt Date: 20250731
  Transmission Date: 20251021
  Serious: No
  Sender: SANOFI AVENTIS
  Company Number: US-SA-2025SA066431

PATIENT
  Age: 77 Year
  Sex: Female
  Weight: 59.42 kg

DRUGS (2)
  1. CAPRELSA [Suspect]
     Active Substance: VANDETANIB
     Indication: Thyroid cancer
     Dosage: 300 MG, QD
     Route: 048
     Dates: start: 20250204, end: 2025
  2. CAPRELSA [Suspect]
     Active Substance: VANDETANIB
     Dosage: 300 MG, QD
     Route: 048
     Dates: start: 2025

REACTIONS (14)
  - Fatigue [Unknown]
  - Pain [Unknown]
  - Rash [Unknown]
  - Tremor [Unknown]
  - Pleurisy [Unknown]
  - Dyspnoea [Unknown]
  - Blood calcitonin abnormal [Unknown]
  - Middle insomnia [Unknown]
  - Dizziness [Unknown]
  - Palpitations [Not Recovered/Not Resolved]
  - Diarrhoea [Unknown]
  - Hypertension [Unknown]
  - Asthenia [Unknown]
  - Sleep disorder due to a general medical condition [Unknown]

NARRATIVE: CASE EVENT DATE: 20250101
